FAERS Safety Report 7660534-3 (Version None)
Quarter: 2011Q3

REPORT INFORMATION
  Report Type: 
  Country: None (occurrence: None)
  Receive Date: 20110805
  Receipt Date: 20110727
  Transmission Date: 20111222
  Serious: Yes (Other)
  Sender: FDA-Public Use
  Company Number: US-ASTRAZENECA-2010SE51062

PATIENT
  Sex: Female
  Weight: 60.3 kg

DRUGS (14)
  1. DARVOCET-N 50 [Concomitant]
     Indication: PAIN
     Dosage: 100-650 MG EVERY 6 HOURS PRN
     Route: 048
     Dates: start: 20100903
  2. ZEGERID [Concomitant]
     Dosage: 40-1100 MG, ONE CAPSULE ONCE DAILY
     Route: 048
     Dates: start: 20100820
  3. KETOROLAC TROMETHAMINE [Concomitant]
     Indication: PAIN
     Dosage: 10 MG EVERY 6 HOURS AS NEEDED ON FULL STOMACH
     Route: 048
     Dates: start: 20100827
  4. LAMICTAL [Concomitant]
     Route: 048
     Dates: start: 20101011
  5. LOPROX [Concomitant]
     Dosage: APPLY AS DIRECTED
     Dates: start: 20100216
  6. SEROQUEL [Suspect]
     Indication: BIPOLAR I DISORDER
     Route: 048
  7. DARVOCET-N 50 [Concomitant]
     Dosage: 100-650 MG, ONE Q 4-6 H PRN
     Dates: start: 20100929
  8. LAMICTAL [Concomitant]
     Route: 048
     Dates: start: 20100216
  9. TOPROL-XL [Concomitant]
     Route: 048
     Dates: start: 20100810
  10. SEROQUEL [Suspect]
     Route: 048
     Dates: start: 20100216, end: 20100923
  11. ERGOCALCIFEROL [Concomitant]
     Route: 048
     Dates: start: 20100908
  12. EVISTA [Concomitant]
     Route: 048
     Dates: start: 20100810
  13. CYMBALTA [Concomitant]
     Route: 048
     Dates: start: 20100216
  14. VICODIN [Concomitant]
     Dosage: 5-500 MG, ONE EVERY 4 HOURS
     Route: 048
     Dates: start: 20100517

REACTIONS (3)
  - INTERVERTEBRAL DISC PROTRUSION [None]
  - NEPHROLITHIASIS [None]
  - ABDOMINAL PAIN [None]
